FAERS Safety Report 18102604 (Version 1)
Quarter: 2020Q3

REPORT INFORMATION
  Report Type: Spontaneous
  Country: US (occurrence: US)
  Receive Date: 20200803
  Receipt Date: 20200803
  Transmission Date: 20201103
  Serious: No
  Sender: FDA-Public Use
  Company Number: US-B.I. PHARMACEUTICALS,INC./RIDGEFIELD-2020-US-037988

PATIENT
  Age: 74 Year
  Sex: Female

DRUGS (2)
  1. OFEV [Suspect]
     Active Substance: NINTEDANIB
     Indication: IDIOPATHIC PULMONARY FIBROSIS
     Dosage: 100MG BID
     Route: 065
     Dates: start: 20200623, end: 20200630
  2. OFEV [Suspect]
     Active Substance: NINTEDANIB
     Dosage: 100MG DAILY
     Route: 065
     Dates: start: 20200709

REACTIONS (4)
  - Diarrhoea [Not Recovered/Not Resolved]
  - Confusional state [Not Recovered/Not Resolved]
  - Abnormal dreams [Not Recovered/Not Resolved]
  - Hallucination [Not Recovered/Not Resolved]

NARRATIVE: CASE EVENT DATE: 20200626
